FAERS Safety Report 12872174 (Version 1)
Quarter: 2016Q4

REPORT INFORMATION
  Report Type: Report from Study
  Country: US (occurrence: US)
  Receive Date: 20161021
  Receipt Date: 20161021
  Transmission Date: 20170207
  Serious: Yes (Other)
  Sender: FDA-Public Use
  Company Number: US-AMGEN-USASL2016143202

PATIENT
  Age: 65 Year
  Sex: Female

DRUGS (1)
  1. PROLIA [Suspect]
     Active Substance: DENOSUMAB
     Indication: PRODUCT USED FOR UNKNOWN INDICATION
     Dosage: UNK
     Route: 065
     Dates: start: 2013

REACTIONS (6)
  - Bone marrow failure [Unknown]
  - Abdominal strangulated hernia [Unknown]
  - Immune system disorder [Unknown]
  - Endodontic procedure [Unknown]
  - Incisional hernia [Unknown]
  - Contusion [Unknown]

NARRATIVE: CASE EVENT DATE: 201602
